FAERS Safety Report 4767919-3 (Version None)
Quarter: 2005Q3

REPORT INFORMATION
  Report Type: 
  Country: None (occurrence: None)
  Receive Date: 20050913
  Receipt Date: 20050829
  Transmission Date: 20060218
  Serious: Yes (Other)
  Sender: FDA-Public Use
  Company Number: HQWYE224031AUG05

PATIENT
  Sex: Female

DRUGS (1)
  1. LO/OVRAL [Suspect]

REACTIONS (1)
  - THYROID GLAND CANCER [None]
